FAERS Safety Report 9351481 (Version 1)
Quarter: 2013Q2

REPORT INFORMATION
  Report Type: Spontaneous
  Country: TR (occurrence: TR)
  Receive Date: 20130617
  Receipt Date: 20130617
  Transmission Date: 20140414
  Serious: Yes (Other)
  Sender: FDA-Public Use
  Company Number: TR-PFIZER INC-2013176262

PATIENT
  Age: 69 Year
  Sex: Female

DRUGS (3)
  1. VENLAFAXINE HCL [Suspect]
     Indication: MAJOR DEPRESSION
     Dosage: 275 MG/DAY
  2. ALPRAZOLAM [Suspect]
     Indication: MAJOR DEPRESSION
     Dosage: UNK
  3. PAROXETINE [Suspect]
     Indication: MAJOR DEPRESSION
     Dosage: 40 MG/DAY

REACTIONS (2)
  - Suicidal ideation [Recovered/Resolved]
  - Drug ineffective [Recovered/Resolved]
